FAERS Safety Report 18096437 (Version 3)
Quarter: 2020Q3

REPORT INFORMATION
  Report Type: Spontaneous
  Country: JP (occurrence: JP)
  Receive Date: 20200731
  Receipt Date: 20200827
  Transmission Date: 20201103
  Serious: Yes (Life-Threatening, Hospitalization, Other)
  Sender: FDA-Public Use
  Company Number: JP-ASTELLAS-2020JP011192

PATIENT
  Age: 34 Year
  Sex: Female

DRUGS (2)
  1. PROGRAF [Suspect]
     Active Substance: TACROLIMUS
     Indication: LUNG TRANSPLANT
     Dosage: 0.8 MG/DAY, UNKNOWN FREQ.
     Route: 048
  2. PREDONINE [Suspect]
     Active Substance: PREDNISOLONE
     Indication: IMMUNOSUPPRESSION
     Dosage: 7.5 MG/DAY, UNKNOWN FREQ.
     Route: 048

REACTIONS (3)
  - Altered state of consciousness [Recovered/Resolved]
  - Condition aggravated [Recovered/Resolved]
  - Respiratory failure [Recovered/Resolved]
